FAERS Safety Report 6026681-7 (Version None)
Quarter: 2008Q4

REPORT INFORMATION
  Report Type: 
  Country: None (occurrence: None)
  Receive Date: 20081231
  Receipt Date: 20081222
  Transmission Date: 20090506
  Serious: Yes (Other)
  Sender: FDA-Public Use
  Company Number: 109572

PATIENT
  Age: 17 Month
  Sex: Female
  Weight: 11.7935 kg

DRUGS (2)
  1. ACETAMINOPHEN [Suspect]
     Indication: COUGH
     Dosage: ONCE/ORAL
     Route: 048
     Dates: start: 20081222, end: 20081222
  2. ACETAMINOPHEN [Suspect]
     Indication: NASOPHARYNGITIS
     Dosage: ONCE/ORAL
     Route: 048
     Dates: start: 20081222, end: 20081222

REACTIONS (2)
  - ACCIDENTAL DRUG INTAKE BY CHILD [None]
  - ANALGESIC DRUG LEVEL INCREASED [None]
